FAERS Safety Report 8935153 (Version 2)
Quarter: 2012Q4

REPORT INFORMATION
  Report Type: 
  Country: JP (occurrence: JP)
  Receive Date: 20121129
  Receipt Date: 20121206
  Transmission Date: 20130627
  Serious: Yes (Other)
  Sender: FDA-Public Use
  Company Number: JP-B.I. PHARMACEUTICALS,INC./RIDGEFIELD-2012-BI-01266NB

PATIENT
  Age: 73 Year
  Sex: Female

DRUGS (6)
  1. PRAZAXA [Suspect]
     Indication: ATRIAL FIBRILLATION
     Dosage: 300 mg
     Route: 048
     Dates: start: 20110611, end: 20121016
  2. RENIVACE [Concomitant]
     Indication: HYPERTENSION
     Route: 065
     Dates: start: 20110312
  3. CONIEL [Concomitant]
     Indication: HYPERTENSION
     Route: 065
     Dates: start: 20111001
  4. LOCHOL [Concomitant]
     Indication: DYSLIPIDAEMIA
     Route: 065
     Dates: start: 20120331
  5. LASIX [Concomitant]
     Indication: HYPERTENSION
     Route: 065
     Dates: start: 20111001
  6. TAMBOCOR [Concomitant]
     Indication: ATRIAL FIBRILLATION
     Route: 065
     Dates: start: 20120928

REACTIONS (1)
  - Cerebral artery embolism [Unknown]
